FAERS Safety Report 17225166 (Version 1)
Quarter: 2020Q1

REPORT INFORMATION
  Report Type: Spontaneous
  Country: US (occurrence: US)
  Receive Date: 20200101
  Receipt Date: 20200101
  Transmission Date: 20200409
  Serious: Yes (Other)
  Sender: FDA-Public Use
  Company Number: None

PATIENT
  Age: 7 Year
  Sex: Female
  Weight: 28.8 kg

DRUGS (6)
  1. BENEFIBER [Concomitant]
     Active Substance: STARCH, WHEAT
  2. MAGNESIUM [Concomitant]
     Active Substance: MAGNESIUM
  3. MELATONIN [Concomitant]
     Active Substance: MELATONIN
  4. IRON [Concomitant]
     Active Substance: IRON
  5. TRAZODONE [Suspect]
     Active Substance: TRAZODONE HYDROCHLORIDE
     Indication: ANXIETY
     Dosage: ?          QUANTITY:1 TABLET(S);?
     Route: 048
     Dates: start: 20191001, end: 20191231
  6. MIRALAX PEN [Concomitant]

REACTIONS (5)
  - Decreased interest [None]
  - Insomnia [None]
  - Product substitution issue [None]
  - Product quality issue [None]
  - Anxiety [None]

NARRATIVE: CASE EVENT DATE: 20191010
